FAERS Safety Report 7423874-9 (Version None)
Quarter: 2011Q2

REPORT INFORMATION
  Report Type: 
  Country: None (occurrence: None)
  Receive Date: 20110419
  Receipt Date: 20110413
  Transmission Date: 20111010
  Serious: Yes (Other)
  Sender: FDA-Public Use
  Company Number: GB-ROCHE-721387

PATIENT
  Sex: Female
  Weight: 53 kg

DRUGS (1)
  1. IBANDRONIC ACID [Suspect]
     Indication: BREAST CANCER METASTATIC
     Route: 048
     Dates: start: 20070719, end: 20100824

REACTIONS (1)
  - ANAEMIA [None]
